FAERS Safety Report 8302369-4 (Version None)
Quarter: 2012Q2

REPORT INFORMATION
  Report Type: 
  Country: None (occurrence: None)
  Receive Date: 20120420
  Receipt Date: 20120411
  Transmission Date: 20120825
  Serious: Yes (Hospitalization)
  Sender: FDA-Public Use
  Company Number: US-ASTRAZENECA-2012SE23741

PATIENT
  Age: 80 Year
  Sex: Female

DRUGS (3)
  1. CARBEDILOL [Concomitant]
     Route: 048
  2. ISOSORBMON [Concomitant]
     Route: 048
  3. BRILINTA [Suspect]
     Route: 048

REACTIONS (1)
  - HEART RATE INCREASED [None]
